FAERS Safety Report 12101152 (Version 1)
Quarter: 2016Q1

REPORT INFORMATION
  Report Type: Report from Study
  Country: CO (occurrence: CO)
  Receive Date: 20160222
  Receipt Date: 20160222
  Transmission Date: 20160526
  Serious: Yes (Other)
  Sender: FDA-Public Use
  Company Number: CO-JNJFOC-20160216019

PATIENT
  Age: 59 Year
  Sex: Male
  Weight: 80 kg

DRUGS (2)
  1. SIMPONI [Suspect]
     Active Substance: GOLIMUMAB
     Indication: RHEUMATOID ARTHRITIS
     Route: 058
     Dates: start: 20140423
  2. PREDNISOLONE. [Concomitant]
     Active Substance: PREDNISOLONE
     Route: 065

REACTIONS (1)
  - Inflammation [Not Recovered/Not Resolved]

NARRATIVE: CASE EVENT DATE: 20150504
